FAERS Safety Report 8229712-9 (Version None)
Quarter: 2012Q1

REPORT INFORMATION
  Report Type: 
  Country: None (occurrence: None)
  Receive Date: 20120322
  Receipt Date: 20120316
  Transmission Date: 20120608
  Serious: Yes (Hospitalization, Other)
  Sender: FDA-Public Use
  Company Number: FR-ASTRAZENECA-2012SE16216

PATIENT
  Age: 56 Year
  Sex: Female

DRUGS (3)
  1. FASLODEX [Suspect]
     Route: 030
     Dates: start: 20120220
  2. FASLODEX [Suspect]
     Route: 030
     Dates: start: 20120206, end: 20120206
  3. FASLODEX [Suspect]
     Indication: BREAST CANCER METASTATIC
     Route: 030
     Dates: start: 20120120, end: 20120120

REACTIONS (6)
  - BLOOD BILIRUBIN INCREASED [None]
  - ASCITES [None]
  - GAMMA-GLUTAMYLTRANSFERASE INCREASED [None]
  - BLOOD ALKALINE PHOSPHATASE INCREASED [None]
  - PROTHROMBIN LEVEL DECREASED [None]
  - ASPARTATE AMINOTRANSFERASE INCREASED [None]
